FAERS Safety Report 6669801-3 (Version None)
Quarter: 2010Q2

REPORT INFORMATION
  Report Type: 
  Country: None (occurrence: None)
  Receive Date: 20100402
  Receipt Date: 20100326
  Transmission Date: 20101027
  Serious: Yes (Hospitalization, Disabling, Other)
  Sender: FDA-Public Use
  Company Number: WAES 0909USA02893

PATIENT
  Age: 43 Year
  Sex: Male

DRUGS (13)
  1. ISENTRESS [Suspect]
     Indication: HIV INFECTION
     Dosage: 800 MG/DAILY
     Route: 048
     Dates: start: 20071013, end: 20071110
  2. ISENTRESS [Suspect]
     Indication: HIV INFECTION
     Dosage: 800 MG/DAILY
     Route: 048
     Dates: start: 20080507, end: 20080925
  3. ISENTRESS [Suspect]
     Indication: HIV INFECTION
     Dosage: 800 MG/DAILY
     Route: 048
     Dates: start: 20071013, end: 20081008
  4. ISENTRESS [Suspect]
     Indication: HIV INFECTION
     Dosage: 800 MG/DAILY
     Route: 048
     Dates: start: 20070926, end: 20081008
  5. EFAVIRENZ [Suspect]
     Indication: HIV INFECTION
     Dosage: 600 MG/DAILY
     Route: 048
     Dates: start: 20071013, end: 20080925
  6. NORVIR [Suspect]
     Indication: HIV INFECTION
     Dosage: 200 MG/DAILY
     Route: 048
     Dates: start: 20071013, end: 20081008
  7. TRUVADA [Suspect]
     Indication: HIV INFECTION
     Dosage: 1 DOSE/DAILY
     Route: 048
     Dates: start: 20070926, end: 20081008
  8. PREZISTA [Suspect]
     Dosage: 1200 MG/DAILY
     Route: 048
     Dates: start: 20071013, end: 20081008
  9. INJ T-20 (ENFUVIRTIDE) [Suspect]
     Indication: HIV INFECTION
     Dosage: 90 MG/BID
     Route: 058
     Dates: start: 20071013, end: 20071110
  10. INJ T-20 (ENFUVIRTIDE) [Suspect]
     Indication: HIV INFECTION
     Dosage: 90 MG/BID
     Route: 058
     Dates: start: 20080507, end: 20080925
  11. DEPAKENE [Concomitant]
  12. LENDORMIN [Concomitant]
  13. RISPERDAL [Concomitant]

REACTIONS (6)
  - ABNORMAL BEHAVIOUR [None]
  - AIDS ENCEPHALOPATHY [None]
  - DRUG INEFFECTIVE [None]
  - FALL [None]
  - RESTLESSNESS [None]
  - SUBDURAL HAEMATOMA [None]
